FAERS Safety Report 4625669-8 (Version None)
Quarter: 2005Q1

REPORT INFORMATION
  Report Type: 
  Country: None (occurrence: None)
  Receive Date: 20050330
  Receipt Date: 20050311
  Transmission Date: 20050727
  Serious: Yes (Life-Threatening, Other)
  Sender: FDA-Public Use
  Company Number: GBS050316902

PATIENT
  Age: 60 Year
  Sex: Female
  Weight: 65 kg

DRUGS (17)
  1. XIGRIS [Suspect]
     Indication: BILIARY SEPSIS
     Dosage: 24 UG/KG/HR
     Dates: start: 20050121, end: 20050124
  2. ATENOLOL [Concomitant]
  3. BENDROFLUAZIDE [Concomitant]
  4. RAMIPRIL [Concomitant]
  5. ALFENTANIL [Concomitant]
  6. MIDAZOLAM HCL [Concomitant]
  7. PROPOFOL [Concomitant]
  8. HUMAN ACTRAPID (INSULIN HUMAN) [Concomitant]
  9. NORADRENALINE [Concomitant]
  10. SODIUM BICARBONATE [Concomitant]
  11. POTASSIUM CHLORIDE [Concomitant]
  12. MAGNESIUM [Concomitant]
  13. ENOXAPARIN SODIUM [Concomitant]
  14. HYDROCORTISONE [Concomitant]
  15. TAZOCIN [Concomitant]
  16. RANITIDINE [Concomitant]
  17. OMEPRAZOLE [Concomitant]

REACTIONS (4)
  - INTRA-ABDOMINAL HAEMORRHAGE [None]
  - OPERATIVE HAEMORRHAGE [None]
  - POST PROCEDURAL HAEMORRHAGE [None]
  - SPLENIC RUPTURE [None]
